FAERS Safety Report 24549218 (Version 2)
Quarter: 2024Q4

REPORT INFORMATION
  Report Type: Report from Study
  Country: FR (occurrence: FR)
  Receive Date: 20241025
  Receipt Date: 20241106
  Transmission Date: 20250115
  Serious: Yes (Other)
  Sender: TAKEDA
  Company Number: FR-TAKEDA-2024TUS094733

PATIENT
  Sex: Male

DRUGS (1)
  1. FRUQUINTINIB [Suspect]
     Active Substance: FRUQUINTINIB
     Indication: Colon cancer metastatic
     Dosage: 5 MILLIGRAM
     Route: 065
     Dates: start: 20240326, end: 20240726

REACTIONS (1)
  - Colon cancer metastatic [Unknown]

NARRATIVE: CASE EVENT DATE: 20240523
